FAERS Safety Report 5219141-4 (Version None)
Quarter: 2007Q1

REPORT INFORMATION
  Report Type: 
  Country: None (occurrence: None)
  Receive Date: 20070124
  Receipt Date: 20070124
  Transmission Date: 20070707
  Serious: Yes (Hospitalization)
  Sender: FDA-Public Use
  Company Number: None

PATIENT
  Age: 75 Year
  Sex: Male
  Weight: 104.3273 kg

DRUGS (18)
  1. ROSIGLITAZONE [Suspect]
     Indication: DIABETES MELLITUS NON-INSULIN-DEPENDENT
     Dosage: 2 MG PO QD
     Route: 048
  2. OMEPRAZOLE [Concomitant]
  3. ROSUVASTATIN CA [Concomitant]
  4. TAMSULOSIN HCL [Concomitant]
  5. ALPRAZOLAM [Concomitant]
  6. CLOPIDOGREL [Concomitant]
  7. FELODIPINE [Concomitant]
  8. FINASTERIDE [Concomitant]
  9. FLUNISOLIDE [Concomitant]
  10. FLUOXETINE HCL [Concomitant]
  11. FOSINOPRIL SODIUM [Concomitant]
  12. FUROSEMIDE [Concomitant]
  13. GEMFIBROZIL [Concomitant]
  14. GLIMEPIRIDE [Concomitant]
  15. HC/N-MYCIN/P-MYXIN [Concomitant]
  16. HYPROMELLOSE [Concomitant]
  17. LABETALOL HCL [Concomitant]
  18. LORATADINE [Concomitant]

REACTIONS (1)
  - DYSPNOEA [None]
